FAERS Safety Report 5509368-6 (Version None)
Quarter: 2007Q4

REPORT INFORMATION
  Report Type: 
  Country: None (occurrence: None)
  Receive Date: 20071107
  Receipt Date: 20071026
  Transmission Date: 20080405
  Serious: Yes (Other)
  Sender: FDA-Public Use
  Company Number: DE-PFIZER INC-2007086233

PATIENT
  Sex: Male

DRUGS (4)
  1. CABASERIL [Suspect]
     Indication: PARKINSON'S DISEASE
     Dosage: DAILY DOSE:8MG
     Dates: start: 19980101, end: 20070925
  2. LEVODOPA [Concomitant]
     Route: 048
  3. PK-MERZ [Concomitant]
     Route: 048
  4. APOMORPHINE [Concomitant]
     Route: 058

REACTIONS (2)
  - AORTIC VALVE INCOMPETENCE [None]
  - AORTIC VALVE SCLEROSIS [None]
